FAERS Safety Report 9722262 (Version 1)
Quarter: 2013Q4

REPORT INFORMATION
  Report Type: Spontaneous
  Country: AU (occurrence: AU)
  Receive Date: 20131202
  Receipt Date: 20131202
  Transmission Date: 20140711
  Serious: Yes (Other)
  Sender: FDA-Public Use
  Company Number: AU-JNJFOC-20131117743

PATIENT
  Sex: 0

DRUGS (1)
  1. CONCERTA [Suspect]
     Indication: ATTENTION DEFICIT/HYPERACTIVITY DISORDER
     Route: 048

REACTIONS (4)
  - Suicide attempt [Unknown]
  - Anhedonia [Unknown]
  - Hypoaesthesia [Unknown]
  - Feeling abnormal [Unknown]
